FAERS Safety Report 6876495-0 (Version None)
Quarter: 2010Q3

REPORT INFORMATION
  Report Type: 
  Country: None (occurrence: None)
  Receive Date: 20100727
  Receipt Date: 20100713
  Transmission Date: 20110219
  Serious: Yes (Hospitalization)
  Sender: FDA-Public Use
  Company Number: JP-ELI_LILLY_AND_COMPANY-JP201007001447

PATIENT
  Age: 65 Year
  Sex: Female

DRUGS (5)
  1. CYMBALTA [Suspect]
     Dosage: 40 MG, DAILY (1/D)
     Route: 048
  2. MEILAX [Concomitant]
     Dosage: 1 MG, DAILY (1/D)
  3. SILECE [Concomitant]
  4. SORENTMIN [Concomitant]
  5. CONSTAN [Concomitant]

REACTIONS (1)
  - HEPATIC FUNCTION ABNORMAL [None]
